FAERS Safety Report 21312514 (Version 1)
Quarter: 2022Q3

REPORT INFORMATION
  Report Type: Spontaneous
  Country: US (occurrence: None)
  Receive Date: 20220909
  Receipt Date: 20220909
  Transmission Date: 20221026
  Serious: No
  Sender: FDA-Public Use
  Company Number: US-ARIS GLOBAL-202206-1187

PATIENT
  Age: 58 Year
  Sex: Male

DRUGS (7)
  1. OXERVATE [Suspect]
     Active Substance: CENEGERMIN-BKBJ
     Indication: Hypoaesthesia eye
     Route: 047
     Dates: start: 20220616
  2. ASPIRIN [Concomitant]
     Active Substance: ASPIRIN
  3. DOCUSATE SODIUM [Concomitant]
     Active Substance: DOCUSATE SODIUM
  4. FAMOTIDINE [Concomitant]
     Active Substance: FAMOTIDINE
  5. ATORVASTATIN CALCIUM [Concomitant]
     Active Substance: ATORVASTATIN CALCIUM
  6. VALSARTAN [Concomitant]
     Active Substance: VALSARTAN
  7. NEOMYCIN-POLYMYXIN-DEXAMETH [Concomitant]

REACTIONS (3)
  - Ocular hyperaemia [Unknown]
  - Vision blurred [Unknown]
  - Product dose omission issue [Unknown]

NARRATIVE: CASE EVENT DATE: 20220601
